FAERS Safety Report 13102432 (Version 1)
Quarter: 2017Q1

REPORT INFORMATION
  Report Type: Spontaneous
  Country: US (occurrence: US)
  Receive Date: 20170110
  Receipt Date: 20170110
  Transmission Date: 20170428
  Serious: No
  Sender: FDA-Public Use
  Company Number: US-TARO-2016TAR00259

PATIENT
  Age: 41 Year
  Sex: Male
  Weight: 97.51 kg

DRUGS (3)
  1. DESOXIMETASONE CREAM USP 0.05% [Suspect]
     Active Substance: DESOXIMETASONE
     Indication: PSORIASIS
     Dosage: 1-2X/DAY, ON FACE UNDERNEATH NOSE
     Route: 061
     Dates: start: 201509, end: 201602
  2. DESOXIMETASONE CREAM USP 0.05% [Suspect]
     Active Substance: DESOXIMETASONE
     Dosage: 1-2X/DAY, ON FACE UNDERNEATH NOSE
     Route: 061
     Dates: start: 201602
  3. ADVAIR HFA [Concomitant]
     Active Substance: FLUTICASONE PROPIONATE\SALMETEROL XINAFOATE

REACTIONS (2)
  - Product quality issue [Not Recovered/Not Resolved]
  - Skin odour abnormal [Not Recovered/Not Resolved]

NARRATIVE: CASE EVENT DATE: 201601
